FAERS Safety Report 11247279 (Version 1)
Quarter: 2015Q3

REPORT INFORMATION
  Report Type: Spontaneous
  Country: FR (occurrence: FR)
  Receive Date: 20150708
  Receipt Date: 20150708
  Transmission Date: 20151125
  Serious: Yes (Hospitalization, Other)
  Sender: FDA-Public Use
  Company Number: FR-PFIZER INC-2015220304

PATIENT
  Age: 23 Year
  Sex: Female

DRUGS (7)
  1. AERIUS [Concomitant]
     Active Substance: DESLORATADINE
  2. NOCERTONE [Suspect]
     Active Substance: OXETORONE
     Dosage: 60 MG, SINGLE IN THE MORNING
     Route: 048
     Dates: start: 20150528, end: 20150528
  3. VENTOLINE [Concomitant]
     Active Substance: ALBUTEROL
  4. RELPAX [Suspect]
     Active Substance: ELETRIPTAN HYDROBROMIDE
     Dosage: 1 DF, SINGLE IN THE MORNING
     Route: 048
     Dates: start: 20150528, end: 20150528
  5. NOCERTONE [Suspect]
     Active Substance: OXETORONE
     Dosage: 1 DF, 1X/DAY AT BEDTIME
  6. XANAX [Concomitant]
     Active Substance: ALPRAZOLAM
  7. SYMBICORT [Concomitant]
     Active Substance: BUDESONIDE\FORMOTEROL FUMARATE DIHYDRATE

REACTIONS (3)
  - Headache [Unknown]
  - Generalised tonic-clonic seizure [Recovered/Resolved]
  - Juvenile myoclonic epilepsy [Unknown]

NARRATIVE: CASE EVENT DATE: 20150528
